FAERS Safety Report 10723774 (Version 4)
Quarter: 2015Q2

REPORT INFORMATION
  Report Type: Spontaneous
  Country: IE (occurrence: IE)
  Receive Date: 20150120
  Receipt Date: 20150414
  Transmission Date: 20150821
  Serious: Yes (Hospitalization)
  Sender: FDA-Public Use
  Company Number: IE-BAXTER-2015BAX001877

PATIENT
  Age: 25 Year
  Sex: Female

DRUGS (3)
  1. CEFTAZIDIME. [Suspect]
     Active Substance: CEFTAZIDIME
     Indication: PRODUCT USED FOR UNKNOWN INDICATION
     Dosage: TDS X 2 WEEKS
     Route: 042
     Dates: start: 20150105, end: 20150110
  2. SODIUM CHLORIDE 0.9% W/V INTRAVENOUS INFUSION BP, POLYOLEFIN/POLYAMIDE [Suspect]
     Active Substance: SODIUM CHLORIDE
     Indication: PRODUCT USED FOR UNKNOWN INDICATION
     Dosage: TDS X 2 WEEK
     Route: 042
     Dates: start: 20150105, end: 20150110
  3. COLISTIMETHATE [Suspect]
     Active Substance: COLISTIMETHATE SODIUM
     Indication: PRODUCT USED FOR UNKNOWN INDICATION
     Dosage: TDS X 2 WEEKS (2 MILLION IU)
     Route: 042
     Dates: start: 20150105, end: 20150110

REACTIONS (1)
  - Vomiting [Recovering/Resolving]

NARRATIVE: CASE EVENT DATE: 20150110
